FAERS Safety Report 6672387-0 (Version None)
Quarter: 2010Q2

REPORT INFORMATION
  Report Type: 
  Country: None (occurrence: None)
  Receive Date: 20100408
  Receipt Date: 20100406
  Transmission Date: 20101027
  Serious: Yes (Hospitalization, Other)
  Sender: FDA-Public Use
  Company Number: JP-JNJFOC-20091203691

PATIENT
  Sex: Male
  Weight: 54 kg

DRUGS (13)
  1. MICONAZOLE NITRATE [Suspect]
     Route: 049
  2. MICONAZOLE NITRATE [Suspect]
     Indication: OESOPHAGEAL CANDIDIASIS
     Route: 049
  3. WARFARIN SODIUM [Interacting]
     Indication: DRUG USE FOR UNKNOWN INDICATION
     Route: 048
  4. WARFARIN SODIUM [Interacting]
     Route: 048
  5. WARFARIN SODIUM [Interacting]
     Route: 048
  6. ASPIRIN [Suspect]
     Indication: DRUG USE FOR UNKNOWN INDICATION
     Route: 048
  7. GLIMICRON [Concomitant]
     Route: 048
  8. ALINAMIN F [Concomitant]
     Route: 048
  9. CARVEDILOL [Concomitant]
     Route: 048
  10. LANSOPRAZOLE [Concomitant]
     Route: 048
  11. GASMOTIN [Concomitant]
     Route: 048
  12. GABAPEN [Concomitant]
     Route: 048
  13. LANDSEN [Concomitant]
     Route: 048

REACTIONS (5)
  - DRUG INTERACTION [None]
  - HAEMATURIA [None]
  - HAEMOPTYSIS [None]
  - HAEMORRHAGE SUBCUTANEOUS [None]
  - INTERNATIONAL NORMALISED RATIO INCREASED [None]
